FAERS Safety Report 16412837 (Version 1)
Quarter: 2019Q2

REPORT INFORMATION
  Report Type: Report from Study
  Country: None (occurrence: US)
  Receive Date: 20190611
  Receipt Date: 20190611
  Transmission Date: 20190711
  Serious: Yes (Hospitalization, Disabling, Other)
  Sender: FDA-Public Use
  Company Number: US-ABBVIE-19K-163-2707715-00

PATIENT
  Age: 46 Year
  Sex: Female
  Weight: 58.11 kg

DRUGS (7)
  1. COUMADIN [Concomitant]
     Active Substance: WARFARIN SODIUM
     Indication: PULMONARY EMBOLISM
  2. AMLODIPINE [Concomitant]
     Active Substance: AMLODIPINE BESYLATE
     Indication: BLOOD PRESSURE MEASUREMENT
  3. IRON [Suspect]
     Active Substance: IRON
     Indication: BLOOD IRON DECREASED
     Route: 065
  4. HUMIRA [Suspect]
     Active Substance: ADALIMUMAB
     Route: 058
     Dates: start: 201812
  5. HUMIRA [Suspect]
     Active Substance: ADALIMUMAB
     Indication: CROHN^S DISEASE
     Route: 058
     Dates: start: 2015, end: 2017
  6. HUMIRA [Suspect]
     Active Substance: ADALIMUMAB
     Route: 058
     Dates: start: 2017, end: 201809
  7. VITAMIN D3 [Concomitant]
     Active Substance: CHOLECALCIFEROL
     Indication: PRODUCT USED FOR UNKNOWN INDICATION

REACTIONS (16)
  - Chest pain [Recovered/Resolved]
  - Uterine disorder [Recovered/Resolved]
  - Abdominal adhesions [Recovered/Resolved]
  - Blood iron decreased [Not Recovered/Not Resolved]
  - Weight decreased [Recovered/Resolved]
  - Hypersensitivity [Recovered/Resolved]
  - Pulmonary fibrosis [Not Recovered/Not Resolved]
  - Feeding disorder [Recovered/Resolved]
  - Postoperative wound infection [Recovered/Resolved]
  - Paraesthesia [Recovered/Resolved]
  - Intestinal stenosis [Recovered/Resolved]
  - Appendicectomy [Unknown]
  - Immunodeficiency [Not Recovered/Not Resolved]
  - Malnutrition [Unknown]
  - Wound complication [Recovered/Resolved]
  - Pulmonary embolism [Recovered/Resolved]

NARRATIVE: CASE EVENT DATE: 2017
